FAERS Safety Report 20427690 (Version 10)
Quarter: 2023Q1

REPORT INFORMATION
  Report Type: Report from Study
  Country: FR (occurrence: None)
  Receive Date: 20220204
  Receipt Date: 20230330
  Transmission Date: 20230417
  Serious: Yes (Hospitalization)
  Sender: FDA-Public Use
  Company Number: FR-ROCHE-3014342

PATIENT
  Age: 75 Year
  Sex: Female
  Weight: 61 kg

DRUGS (9)
  1. ATEZOLIZUMAB [Suspect]
     Active Substance: ATEZOLIZUMAB
     Indication: Soft tissue sarcoma
     Dosage: LAST ADMINISTRATION BEFORE SAE ON 27/JAN/2022
     Route: 041
     Dates: start: 20220113, end: 20220127
  2. COBIMETINIB [Suspect]
     Active Substance: COBIMETINIB
     Indication: Soft tissue sarcoma
     Dosage: LAST ADMINISTRATION BEFORE SAE ON 27/JAN/2022?EVERY 1 DAY(S) 21 DAYS ON/ 7 DAYS OFF
     Route: 048
     Dates: start: 20220113, end: 20220127
  3. COBIMETINIB [Suspect]
     Active Substance: COBIMETINIB
     Dosage: EVERY 1 DAY(S) 21 DAYS ON/ 7 DAYS OFF
     Route: 048
     Dates: start: 20220202, end: 20220208
  4. COBIMETINIB [Suspect]
     Active Substance: COBIMETINIB
     Dosage: EVERY 1 DAY(S) 21 DAYS ON/ 7 DAYS OFF
     Route: 048
     Dates: start: 20220214, end: 20220222
  5. METFORMIN [Concomitant]
     Active Substance: METFORMIN HYDROCHLORIDE
     Indication: Diabetes mellitus
  6. LEVOTHYROXINE [Concomitant]
     Active Substance: LEVOTHYROXINE
     Indication: Hypothyroidism
     Route: 048
  7. DENOSUMAB [Concomitant]
     Active Substance: DENOSUMAB
     Indication: Metastases to bone
     Route: 058
  8. ACETAMINOPHEN [Concomitant]
     Active Substance: ACETAMINOPHEN
  9. CALCIUM\CHOLECALCIFEROL [Concomitant]
     Active Substance: CALCIUM\CHOLECALCIFEROL
     Dosage: ORALLY, 1 DAILY

REACTIONS (2)
  - Acute respiratory failure [Recovered/Resolved]
  - Myocarditis [Recovered/Resolved]

NARRATIVE: CASE EVENT DATE: 20220127
